FAERS Safety Report 8600320 (Version 3)
Quarter: 2013Q4

REPORT INFORMATION
  Report Type: Spontaneous
  Country: US (occurrence: US)
  Receive Date: 20120606
  Receipt Date: 20131129
  Transmission Date: 20140711
  Serious: Yes (Hospitalization, Disabling)
  Sender: FDA-Public Use
  Company Number: US-ASTRAZENECA-2012SE35385

PATIENT
  Age: 59 Year
  Sex: Female

DRUGS (10)
  1. NEXIUM [Suspect]
     Indication: GASTROOESOPHAGEAL REFLUX DISEASE
     Dosage: TWO TIMES A DAY
     Route: 048
     Dates: start: 2000
  2. NEXIUM [Suspect]
     Indication: GASTROOESOPHAGEAL REFLUX DISEASE
     Route: 048
     Dates: start: 20130219
  3. MYLANTA [Concomitant]
  4. ALKA SELTZER [Concomitant]
  5. CYCLOBENZAPRINE [Concomitant]
  6. GABAPENTIN [Concomitant]
  7. HYDROXYCHLOROQUINE [Concomitant]
  8. AMITRIPTYLINE [Concomitant]
     Route: 048
     Dates: start: 20130219
  9. CLOPIDOGREL [Concomitant]
     Route: 048
     Dates: start: 20130219
  10. METOPROLOL [Concomitant]
     Dates: start: 20130219

REACTIONS (15)
  - Fibromyalgia [Unknown]
  - Rheumatoid arthritis [Unknown]
  - Chest pain [Unknown]
  - Osteoporosis [Unknown]
  - Cardiac disorder [Unknown]
  - Multiple fractures [Unknown]
  - Gastrointestinal disorder [Unknown]
  - Gastrooesophageal reflux disease [Unknown]
  - Aortic disorder [Unknown]
  - Arthritis [Unknown]
  - Bone disorder [Unknown]
  - Lung disorder [Unknown]
  - Hypothyroidism [Unknown]
  - Vitamin D deficiency [Unknown]
  - Depression [Unknown]
